FAERS Safety Report 5392012-9 (Version None)
Quarter: 2007Q3

REPORT INFORMATION
  Report Type: 
  Country: None (occurrence: None)
  Receive Date: 20070717
  Receipt Date: 20070717
  Transmission Date: 20080115
  Serious: Yes (Hospitalization)
  Sender: FDA-Public Use
  Company Number: None

PATIENT
  Sex: Female
  Weight: 64.5 kg

DRUGS (3)
  1. CETUXIMAB [Suspect]
     Indication: LARYNGEAL CANCER
     Dosage: 250MG/M2 IV QW
     Route: 042
     Dates: start: 20070703
  2. CARBOPLATIN [Suspect]
     Indication: LARYNGEAL CANCER
     Dosage: AUC 6 Q4WKS IV
     Route: 042
     Dates: start: 20060626
  3. TAXOL [Suspect]
     Dosage: 100 MG/M2 IV QW
     Route: 042
     Dates: start: 20070703

REACTIONS (3)
  - BLOOD CULTURE POSITIVE [None]
  - CATHETER REMOVAL [None]
  - STAPHYLOCOCCAL INFECTION [None]
